FAERS Safety Report 18602352 (Version 2)
Quarter: 2020Q4

REPORT INFORMATION
  Report Type: Spontaneous
  Country: CA (occurrence: CA)
  Receive Date: 20201211
  Receipt Date: 20201216
  Transmission Date: 20210114
  Serious: Yes (Other)
  Sender: FDA-Public Use
  Company Number: CA-CELLTRION INC.-2020CA027770

PATIENT

DRUGS (9)
  1. INFLECTRA [Suspect]
     Active Substance: INFLIXIMAB-DYYB
     Indication: CROHN^S DISEASE
     Dosage: 5 MG/KG AT 0, 2, 6 WEEKS, THEN EVERY 8 WEEKS
     Route: 042
     Dates: start: 20200819
  2. CALCIUM [Concomitant]
     Active Substance: CALCIUM
     Dosage: UNK
     Route: 065
  3. PREDNISONE. [Concomitant]
     Active Substance: PREDNISONE
     Dosage: UNK
     Dates: start: 20200724
  4. INFLECTRA [Suspect]
     Active Substance: INFLIXIMAB-DYYB
     Dosage: 5 MG/KG AT 0, 2, 6 WEEKS, THEN EVERY 8 WEEKS
     Route: 042
     Dates: start: 20201017
  5. TYLENOL [Concomitant]
     Active Substance: ACETAMINOPHEN
     Dosage: UNK, AS NEEDED
  6. INFLECTRA [Suspect]
     Active Substance: INFLIXIMAB-DYYB
     Dosage: 5 MG/KG AT 0, 2, 6 WEEKS, THEN EVERY 8 WEEKS
     Route: 042
     Dates: start: 20200910
  7. CORTISONE [CORTISONE ACETATE] [Concomitant]
     Dosage: UNK
  8. IRON [Concomitant]
     Active Substance: IRON
     Dosage: UNK
     Route: 048
  9. VITAMIN D NOS [Concomitant]
     Active Substance: VITAMIN D NOS
     Dosage: UNK
     Route: 048

REACTIONS (26)
  - Throat irritation [Unknown]
  - Pelvic pain [Not Recovered/Not Resolved]
  - Blood pressure systolic increased [Unknown]
  - Seasonal allergy [Unknown]
  - Hypoaesthesia [Unknown]
  - Respiratory disorder [Recovered/Resolved]
  - Burning sensation [Unknown]
  - Adnexa uteri pain [Recovering/Resolving]
  - Pain [Unknown]
  - Groin abscess [Recovered/Resolved]
  - Oropharyngeal pain [Unknown]
  - Skin warm [Recovered/Resolved]
  - Feeling hot [Unknown]
  - Nightmare [Not Recovered/Not Resolved]
  - Flashback [Not Recovered/Not Resolved]
  - Abdominal pain lower [Recovered/Resolved]
  - Pollakiuria [Unknown]
  - Ovarian disorder [Unknown]
  - Sleep disorder due to general medical condition, insomnia type [Unknown]
  - Ovarian cyst [Unknown]
  - Chest discomfort [Unknown]
  - Fungal infection [Not Recovered/Not Resolved]
  - Rash [Recovered/Resolved]
  - Palpitations [Unknown]
  - Dyspnoea [Not Recovered/Not Resolved]
  - Acne [Unknown]

NARRATIVE: CASE EVENT DATE: 20200910
